FAERS Safety Report 9999353 (Version 1)
Quarter: 2014Q1

REPORT INFORMATION
  Report Type: Spontaneous
  Country: US (occurrence: None)
  Receive Date: 20140311
  Receipt Date: 20140311
  Transmission Date: 20141002
  Serious: Yes (Other)
  Sender: FDA-Public Use
  Company Number: None

PATIENT
  Age: 80 Year
  Sex: Female

DRUGS (8)
  1. NEXIUM [Suspect]
     Dates: start: 20131031, end: 20140310
  2. METOPROLOL [Concomitant]
  3. DILTIAZEM [Concomitant]
  4. UROSIOL [Concomitant]
  5. WARFARIN [Concomitant]
  6. LISINOPRIL [Concomitant]
  7. OXYBUTYNIN [Concomitant]
  8. ATORVASTATIN [Concomitant]

REACTIONS (1)
  - Nervousness [None]
